FAERS Safety Report 6554520-4 (Version None)
Quarter: 2010Q1

REPORT INFORMATION
  Report Type: 
  Country: None (occurrence: None)
  Receive Date: 20100127
  Receipt Date: 20100118
  Transmission Date: 20100710
  Serious: Yes (Hospitalization)
  Sender: FDA-Public Use
  Company Number: PHEH2010US01105

PATIENT
  Sex: Male

DRUGS (1)
  1. EXJADE [Suspect]
     Indication: IRON OVERLOAD
     Dosage: 1500 UNK, DAILY
     Route: 048
     Dates: start: 20090813, end: 20090924

REACTIONS (1)
  - CLOSTRIDIUM DIFFICILE COLITIS [None]
